FAERS Safety Report 17125939 (Version 1)
Quarter: 2019Q4

REPORT INFORMATION
  Report Type: Spontaneous
  Country: ES (occurrence: ES)
  Receive Date: 20191208
  Receipt Date: 20191208
  Transmission Date: 20200122
  Serious: Yes (Other)
  Sender: FDA-Public Use
  Company Number: ES-AUROBINDO-AUR-APL-2019-076137

PATIENT
  Age: 66 Year
  Sex: Female

DRUGS (1)
  1. ERTAPENEM. [Suspect]
     Active Substance: ERTAPENEM SODIUM
     Indication: ESCHERICHIA INFECTION
     Dosage: UNK, DAILY
     Route: 042

REACTIONS (7)
  - Hypersensitivity vasculitis [Recovered/Resolved]
  - Skin plaque [Recovered/Resolved]
  - Skin oedema [Recovered/Resolved]
  - Arthralgia [Recovered/Resolved]
  - Skin lesion [Recovered/Resolved]
  - Purpura [Recovered/Resolved]
  - Malaise [Recovered/Resolved]
